FAERS Safety Report 10222946 (Version 2)
Quarter: 2014Q2

REPORT INFORMATION
  Report Type: Spontaneous
  Country: US (occurrence: US)
  Receive Date: 20140607
  Receipt Date: 20140627
  Transmission Date: 20141212
  Serious: No
  Sender: FDA-Public Use
  Company Number: US-009507513-1405USA008315

PATIENT
  Age: 61 Year
  Sex: Female

DRUGS (1)
  1. DULERA [Suspect]
     Indication: HYPERSENSITIVITY
     Dosage: 100/5 MCG, TWO PUFFS TWICE DAILY
     Route: 055
     Dates: start: 20140513

REACTIONS (7)
  - Cough [Not Recovered/Not Resolved]
  - Drug dose omission [Unknown]
  - Drug dose omission [Unknown]
  - Product quality issue [Unknown]
  - Product container issue [Unknown]
  - Drug administration error [Unknown]
  - Drug ineffective for unapproved indication [Not Recovered/Not Resolved]
